FAERS Safety Report 6252018-4 (Version None)
Quarter: 2009Q2

REPORT INFORMATION
  Report Type: 
  Country: None (occurrence: None)
  Receive Date: 20090630
  Receipt Date: 20061216
  Transmission Date: 20091009
  Serious: Yes (Hospitalization)
  Sender: FDA-Public Use
  Company Number: US-ROCHE-638475

PATIENT
  Sex: Male

DRUGS (12)
  1. ENFUVIRTIDE [Suspect]
     Route: 065
     Dates: start: 20040628, end: 20071116
  2. EMTRIVA [Concomitant]
     Dosage: FREQUENCY: QD.
     Dates: start: 20040628, end: 20040826
  3. VIREAD [Concomitant]
     Dosage: FREQUENCY: QD.
     Dates: start: 20040628, end: 20040826
  4. VIREAD [Concomitant]
     Dates: start: 20070104, end: 20080814
  5. ZIAGEN [Concomitant]
     Dosage: FREQUENCY: QD.
     Dates: start: 20040628, end: 20070104
  6. TRUVADA [Concomitant]
     Dosage: FREQUENCY: QD.
     Dates: start: 20040826, end: 20070104
  7. EPZICOM [Concomitant]
     Dosage: FREQUENCY: QD.
     Dates: start: 20070104, end: 20080814
  8. ISENTRESS [Concomitant]
     Dates: start: 20071019, end: 20080814
  9. BACTRIM DS [Concomitant]
     Dates: start: 20020307, end: 20041202
  10. ZITHROMAX [Concomitant]
     Dates: start: 20050512, end: 20050501
  11. CEFTIN [Concomitant]
     Dates: start: 20070201, end: 20070209
  12. LEVAQUIN [Concomitant]
     Dates: start: 20070401, end: 20070401

REACTIONS (4)
  - ACQUIRED IMMUNODEFICIENCY SYNDROME [None]
  - ATRIAL FIBRILLATION [None]
  - COAGULOPATHY [None]
  - RENAL FAILURE ACUTE [None]
